FAERS Safety Report 4334431-5 (Version None)
Quarter: 2004Q1

REPORT INFORMATION
  Report Type: 
  Country: None (occurrence: None)
  Receive Date: 20040329
  Receipt Date: 20040220
  Transmission Date: 20041129
  Serious: No
  Sender: FDA-Public Use
  Company Number: 04P-163-0250713-00

PATIENT
  Age: 78 Year
  Sex: Female
  Weight: 58.9676 kg

DRUGS (5)
  1. HUMIRA [Suspect]
     Indication: RHEUMATOID ARTHRITIS
     Dosage: 40 MG, 1 IN 2 WK, SUBCUTANEOUS
     Route: 058
     Dates: start: 20031201
  2. FOLIC ACID [Concomitant]
  3. METHOTREXATE SODIUM [Concomitant]
  4. MULTIVITAMIN [Concomitant]
  5. ALPRAZOLAM [Concomitant]

REACTIONS (7)
  - CHEST DISCOMFORT [None]
  - CHILLS [None]
  - DYSPNOEA [None]
  - EAR PAIN [None]
  - INJECTION SITE PAIN [None]
  - LOCALISED INFECTION [None]
  - PHARYNGOLARYNGEAL PAIN [None]
